FAERS Safety Report 6914927-X (Version None)
Quarter: 2010Q3

REPORT INFORMATION
  Report Type: 
  Country: None (occurrence: None)
  Receive Date: 20100809
  Receipt Date: 20100729
  Transmission Date: 20110219
  Serious: Yes (Disabling)
  Sender: FDA-Public Use
  Company Number: PHHY2010BR50177

PATIENT
  Sex: Female

DRUGS (1)
  1. EXFORGE [Suspect]
     Dosage: 320/5 MG

REACTIONS (2)
  - CAST APPLICATION [None]
  - LIMB DISCOMFORT [None]
